FAERS Safety Report 25170404 (Version 1)
Quarter: 2025Q2

REPORT INFORMATION
  Report Type: Spontaneous
  Country: BR (occurrence: BR)
  Receive Date: 20250408
  Receipt Date: 20250408
  Transmission Date: 20250717
  Serious: Yes (Other)
  Sender: NOVO NORDISK
  Company Number: BR-NOVOPROD-1399605

PATIENT
  Age: 795 Month
  Sex: Female

DRUGS (3)
  1. SAXENDA [Suspect]
     Active Substance: LIRAGLUTIDE
     Indication: Product used for unknown indication
  2. SAXENDA [Suspect]
     Active Substance: LIRAGLUTIDE
  3. TRAMADOL [Concomitant]
     Active Substance: TRAMADOL

REACTIONS (1)
  - Knee operation [Unknown]
